FAERS Safety Report 6028081-2 (Version None)
Quarter: 2009Q1

REPORT INFORMATION
  Report Type: 
  Country: None (occurrence: None)
  Receive Date: 20090102
  Receipt Date: 20081223
  Transmission Date: 20090719
  Serious: Yes (Hospitalization, Other)
  Sender: FDA-Public Use
  Company Number: 2008SP003227

PATIENT
  Age: 67 Year
  Sex: Female

DRUGS (7)
  1. BROVANA [Suspect]
     Indication: ASTHMA
     Dosage: 15 UG/2ML; BID; INHALATION
     Route: 055
     Dates: start: 20080101, end: 20081212
  2. PULMICORT-100 [Suspect]
     Indication: ASTHMA
     Dosage: BID; INHALATION
     Route: 055
     Dates: start: 20080101, end: 20081212
  3. LIPITOR (CON.) [Concomitant]
  4. ACIPHEX (CON.) [Concomitant]
  5. ZOLOFT /01011402/ (CON.) [Concomitant]
  6. VITAMINS (CON.) [Concomitant]
  7. PREV MEDS [Concomitant]

REACTIONS (2)
  - CONVULSION [None]
  - LOSS OF CONSCIOUSNESS [None]
